FAERS Safety Report 4316769-0 (Version None)
Quarter: 2004Q1

REPORT INFORMATION
  Report Type: 
  Country: None (occurrence: None)
  Receive Date: 20040311
  Receipt Date: 20040211
  Transmission Date: 20041129
  Serious: Yes (Hospitalization)
  Sender: FDA-Public Use
  Company Number: 200410069BFR

PATIENT
  Age: 46 Year
  Sex: Female

DRUGS (1)
  1. IZILOX (MOXIFLOXATION HYDROCHLORIDE) [Suspect]
     Indication: POSTOPERATIVE INFECTION
     Dosage: ORAL
     Route: 048
     Dates: start: 20031215, end: 20040106

REACTIONS (1)
  - AGRANULOCYTOSIS [None]
